FAERS Safety Report 10221238 (Version 1)
Quarter: 2014Q2

REPORT INFORMATION
  Report Type: Spontaneous
  Country: US (occurrence: US)
  Receive Date: 20140606
  Receipt Date: 20140606
  Transmission Date: 20141212
  Serious: No
  Sender: FDA-Public Use
  Company Number: US-GLAXOSMITHKLINE-A1066714A

PATIENT
  Age: 62 Year
  Sex: Male
  Weight: 99.5 kg

DRUGS (6)
  1. BREO ELLIPTA [Suspect]
     Indication: CHRONIC OBSTRUCTIVE PULMONARY DISEASE
     Route: 055
     Dates: start: 20140320, end: 20140320
  2. ADVAIR DISKUS [Suspect]
     Route: 055
  3. SPIRIVA [Concomitant]
  4. DUONEB [Concomitant]
  5. ALBUTEROL [Concomitant]
  6. DALIRESP [Concomitant]

REACTIONS (2)
  - Dyspnoea [Recovered/Resolved]
  - Cough [Recovered/Resolved]
